FAERS Safety Report 9845935 (Version 1)
Quarter: 2013Q4

REPORT INFORMATION
  Report Type: Spontaneous
  Country: US (occurrence: None)
  Receive Date: 20131219
  Receipt Date: 20131219
  Transmission Date: 20140711
  Serious: Yes (Disabling)
  Sender: FDA-Public Use
  Company Number: 163-20785-13041648

PATIENT
  Age: 83 Year
  Sex: Male

DRUGS (5)
  1. THALOMID (THALIDOMIDE) (50 MILLIGRAM, CAPSULES) [Suspect]
     Indication: PLASMA CELL MYELOMA
     Route: 048
     Dates: start: 201201
  2. VELCADE (BORTEZOMIB) (INJECTION) [Suspect]
     Indication: PLASMA CELL MYELOMA
     Dosage: 4 IN 3 WK
     Route: 042
     Dates: start: 201101
  3. PAMIDRONATE (PAMIDRONATE DISODIUM) [Concomitant]
  4. GRANISETRON [Concomitant]
  5. DEXAMETHASONE [Concomitant]

REACTIONS (2)
  - Neuropathy peripheral [None]
  - Asthenia [None]
